FAERS Safety Report 15930744 (Version 1)
Quarter: 2019Q1

REPORT INFORMATION
  Report Type: Spontaneous
  Country: ES (occurrence: ES)
  Receive Date: 20190207
  Receipt Date: 20190207
  Transmission Date: 20190417
  Serious: Yes (Death, Hospitalization, Other)
  Sender: FDA-Public Use
  Company Number: ES-ACCORD-105522

PATIENT
  Age: 60 Year
  Sex: Male

DRUGS (3)
  1. FLUOROURACIL. [Suspect]
     Active Substance: FLUOROURACIL
     Indication: SQUAMOUS CELL CARCINOMA
     Route: 042
     Dates: start: 20170626, end: 20170626
  2. DOCETAXEL. [Suspect]
     Active Substance: DOCETAXEL
     Indication: SQUAMOUS CELL CARCINOMA
     Route: 042
     Dates: start: 20170626, end: 20170626
  3. CISPLATIN. [Suspect]
     Active Substance: CISPLATIN
     Indication: SQUAMOUS CELL CARCINOMA
     Route: 042
     Dates: start: 20170626, end: 20170626

REACTIONS (4)
  - Streptococcal bacteraemia [Fatal]
  - Septic shock [Fatal]
  - Staphylococcal bacteraemia [Fatal]
  - Febrile neutropenia [Fatal]

NARRATIVE: CASE EVENT DATE: 20170704
